FAERS Safety Report 7207346-2 (Version None)
Quarter: 2010Q4

REPORT INFORMATION
  Report Type: 
  Country: None (occurrence: None)
  Receive Date: 20101217
  Receipt Date: 20101208
  Transmission Date: 20110411
  Serious: Yes (Other)
  Sender: FDA-Public Use
  Company Number: 2010US004992

PATIENT
  Age: 72 Year
  Sex: Female

DRUGS (9)
  1. AMBISOME [Suspect]
     Indication: FUNGAL INFECTION
     Dosage: 50 MG, UID/QD, IV NOS
     Route: 042
     Dates: start: 20101110, end: 20101110
  2. PREDNISOLONE [Concomitant]
  3. LASIX [Concomitant]
  4. ALDACTONE [Concomitant]
  5. WARFARIN (WARFARIN) [Concomitant]
  6. CELESTAMINE TAB [Concomitant]
  7. OMEPRAZOLE [Concomitant]
  8. BONALON (ALENDRONATE SODIUM) [Concomitant]
  9. FUNGIZONE [Concomitant]

REACTIONS (2)
  - CHEST DISCOMFORT [None]
  - PALPITATIONS [None]
